FAERS Safety Report 8994205 (Version 2)
Quarter: 2013Q1

REPORT INFORMATION
  Report Type: Spontaneous
  Country: US (occurrence: US)
  Receive Date: 20130102
  Receipt Date: 20130204
  Transmission Date: 20140127
  Serious: No
  Sender: FDA-Public Use
  Company Number: US-AMGEN-USASP2012081178

PATIENT
  Age: 63 Year
  Sex: Female
  Weight: 86.17 kg

DRUGS (2)
  1. ENBREL [Suspect]
     Indication: PSORIATIC ARTHROPATHY
     Dosage: 50 MG, BIWEEKLY
     Route: 058
     Dates: start: 20080508
  2. ENBREL [Suspect]
     Indication: PSORIASIS

REACTIONS (2)
  - Accidental overdose [Recovered/Resolved]
  - Flank pain [Recovered/Resolved]
